FAERS Safety Report 19176007 (Version 1)
Quarter: 2021Q2

REPORT INFORMATION
  Report Type: Spontaneous
  Country: GB (occurrence: GB)
  Receive Date: 20210423
  Receipt Date: 20210423
  Transmission Date: 20210717
  Serious: Yes (Life-Threatening, Other)
  Sender: FDA-Public Use
  Company Number: GB-PURDUE-USA-2018-0249870

PATIENT
  Age: 42 Year
  Sex: Female

DRUGS (12)
  1. GABAPENTIN. [Concomitant]
     Active Substance: GABAPENTIN
  2. LEVETIRACETAM. [Concomitant]
     Active Substance: LEVETIRACETAM
  3. METOCLOPRAMIDE. [Concomitant]
     Active Substance: METOCLOPRAMIDE
  4. BUPRENORPHINE. [Suspect]
     Active Substance: BUPRENORPHINE
     Indication: ABDOMINAL PAIN
     Dosage: UNK
     Route: 062
  5. BECLOMETASONE [Concomitant]
     Active Substance: BECLOMETHASONE DIPROPIONATE
  6. LACTULOSE. [Concomitant]
     Active Substance: LACTULOSE
  7. SALBUTAMOL [Concomitant]
     Active Substance: ALBUTEROL
  8. ACETYLSALICYLIC ACID [Concomitant]
     Active Substance: ASPIRIN
  9. DOCUSATE [Concomitant]
     Active Substance: DOCUSATE
  10. ATORVASTATIN [Concomitant]
     Active Substance: ATORVASTATIN
  11. LANSOPRAZOLE. [Concomitant]
     Active Substance: LANSOPRAZOLE
  12. FLUOXETINE [Concomitant]
     Active Substance: FLUOXETINE HYDROCHLORIDE

REACTIONS (3)
  - Respiratory disorder [Recovered/Resolved]
  - Product prescribing error [Unknown]
  - Coma scale abnormal [Recovered/Resolved]

NARRATIVE: CASE EVENT DATE: 20180409
